FAERS Safety Report 19243530 (Version 4)
Quarter: 2022Q4

REPORT INFORMATION
  Report Type: Report from Study
  Country: US (occurrence: US)
  Receive Date: 20210511
  Receipt Date: 20221103
  Transmission Date: 20230113
  Serious: Yes (Hospitalization, Other)
  Sender: FDA-Public Use
  Company Number: US-SHIRE-US201929906

PATIENT
  Age: 85 Year
  Sex: Male

DRUGS (16)
  1. TEDUGLUTIDE [Suspect]
     Active Substance: TEDUGLUTIDE
     Indication: Short-bowel syndrome
     Dosage: 5 MILLIGRAM, QD
     Route: 058
     Dates: start: 201801
  2. TEDUGLUTIDE [Suspect]
     Active Substance: TEDUGLUTIDE
     Indication: Short-bowel syndrome
     Dosage: 5 MILLIGRAM, QD
     Route: 058
     Dates: start: 201801
  3. TEDUGLUTIDE [Suspect]
     Active Substance: TEDUGLUTIDE
     Indication: Short-bowel syndrome
     Dosage: 5 MILLIGRAM, QD
     Route: 058
     Dates: start: 201801
  4. TEDUGLUTIDE [Suspect]
     Active Substance: TEDUGLUTIDE
     Indication: Short-bowel syndrome
     Dosage: 5 MILLIGRAM, QD
     Route: 058
     Dates: start: 201801
  5. TEDUGLUTIDE [Suspect]
     Active Substance: TEDUGLUTIDE
     Dosage: 3.76 MILLIGRAM, QD
     Route: 058
     Dates: start: 20180113
  6. TEDUGLUTIDE [Suspect]
     Active Substance: TEDUGLUTIDE
     Dosage: 3.76 MILLIGRAM, QD
     Route: 058
     Dates: start: 20180113
  7. TEDUGLUTIDE [Suspect]
     Active Substance: TEDUGLUTIDE
     Dosage: 3.76 MILLIGRAM, QD
     Route: 058
     Dates: start: 20180113
  8. TEDUGLUTIDE [Suspect]
     Active Substance: TEDUGLUTIDE
     Dosage: 3.76 MILLIGRAM, QD
     Route: 058
     Dates: start: 20180113
  9. TEDUGLUTIDE [Suspect]
     Active Substance: TEDUGLUTIDE
     Dosage: 3.76 MILLIGRAM, QD
     Route: 058
     Dates: start: 20200213
  10. TEDUGLUTIDE [Suspect]
     Active Substance: TEDUGLUTIDE
     Dosage: 3.76 MILLIGRAM, QD
     Route: 058
     Dates: start: 20200213
  11. TEDUGLUTIDE [Suspect]
     Active Substance: TEDUGLUTIDE
     Dosage: 3.76 MILLIGRAM, QD
     Route: 058
     Dates: start: 20200213
  12. TEDUGLUTIDE [Suspect]
     Active Substance: TEDUGLUTIDE
     Dosage: 3.76 MILLIGRAM, QD
     Route: 058
     Dates: start: 20200213
  13. TEDUGLUTIDE [Suspect]
     Active Substance: TEDUGLUTIDE
     Dosage: 3.76 MILLIGRAM, QD
     Route: 058
     Dates: start: 20210129
  14. TEDUGLUTIDE [Suspect]
     Active Substance: TEDUGLUTIDE
     Dosage: 3.76 MILLIGRAM, QD
     Route: 058
     Dates: start: 20210129
  15. TEDUGLUTIDE [Suspect]
     Active Substance: TEDUGLUTIDE
     Dosage: 3.76 MILLIGRAM, QD
     Route: 058
     Dates: start: 20210129
  16. TEDUGLUTIDE [Suspect]
     Active Substance: TEDUGLUTIDE
     Dosage: 3.76 MILLIGRAM, QD
     Route: 058
     Dates: start: 20210129

REACTIONS (8)
  - Hip fracture [Unknown]
  - Skin cancer [Unknown]
  - Brain neoplasm [Unknown]
  - Post procedural infection [Unknown]
  - Urticaria [Unknown]
  - Rash [Unknown]
  - Injection site reaction [Unknown]
  - Skin swelling [Unknown]

NARRATIVE: CASE EVENT DATE: 20190902
